FAERS Safety Report 20636073 (Version 1)
Quarter: 2022Q1

REPORT INFORMATION
  Report Type: Spontaneous
  Country: US (occurrence: None)
  Receive Date: 20220324
  Receipt Date: 20220324
  Transmission Date: 20220423
  Serious: Yes (Hospitalization)
  Sender: FDA-Public Use
  Company Number: None

PATIENT
  Age: 78 Year
  Sex: Female

DRUGS (11)
  1. AMBRISENTAN [Suspect]
     Active Substance: AMBRISENTAN
     Indication: Pulmonary hypertension
     Dosage: FREQUENCY : DAILY;?
     Route: 048
     Dates: start: 20161130
  2. ASPIRIN [Concomitant]
     Active Substance: ASPIRIN
  3. ALBUTEROL [Concomitant]
     Active Substance: ALBUTEROL
  4. SPIRIVA RESPIMAT [Concomitant]
     Active Substance: TIOTROPIUM BROMIDE
  5. METHIMAZOLE [Concomitant]
     Active Substance: METHIMAZOLE
  6. ALBUTEROL SULFATE [Concomitant]
     Active Substance: ALBUTEROL SULFATE
  7. LORAZEPAM [Concomitant]
     Active Substance: LORAZEPAM
  8. LASIX [Concomitant]
     Active Substance: FUROSEMIDE
  9. K-TAB [Concomitant]
     Active Substance: POTASSIUM CHLORIDE
  10. FLONASE [Concomitant]
     Active Substance: FLUTICASONE PROPIONATE
  11. VITAMIN D [Concomitant]
     Active Substance: VITAMIN D NOS
     Dosage: FREQUENCY : DAILY;?
     Route: 048
     Dates: start: 20161130

REACTIONS (2)
  - Pulmonary hypertension [None]
  - Procedural hypotension [None]

NARRATIVE: CASE EVENT DATE: 20220306
